FAERS Safety Report 4331458-4 (Version None)
Quarter: 2004Q1

REPORT INFORMATION
  Report Type: 
  Country: None (occurrence: None)
  Receive Date: 20040331
  Receipt Date: 20040319
  Transmission Date: 20041129
  Serious: Yes (Hospitalization)
  Sender: FDA-Public Use
  Company Number: 2004SE01592

PATIENT
  Age: 79 Year
  Sex: Male

DRUGS (2)
  1. BLOPRESS [Suspect]
     Indication: HYPERTENSION
     Dosage: 12 MG DAILY PO
     Route: 048
     Dates: start: 20030801, end: 20040315
  2. NORVASC [Suspect]
     Dosage: 15 MG DAILY PO
     Route: 048
     Dates: end: 20040315

REACTIONS (2)
  - OEDEMA [None]
  - PLEURAL EFFUSION [None]
